FAERS Safety Report 24349617 (Version 1)
Quarter: 2024Q3

REPORT INFORMATION
  Report Type: Report from Study
  Country: US (occurrence: US)
  Receive Date: 20240923
  Receipt Date: 20240923
  Transmission Date: 20241016
  Serious: Yes (Hospitalization)
  Sender: JAZZ
  Company Number: US-JAZZ PHARMACEUTICALS-2024-US-015590

PATIENT
  Sex: Female

DRUGS (22)
  1. EPIDIOLEX [Suspect]
     Active Substance: CANNABIDIOL
     Indication: Epilepsy
     Dosage: 3 MILLILITER, BID
     Route: 048
     Dates: start: 20200317
  2. PROBIOTIC ATP [Concomitant]
     Indication: Product used for unknown indication
  3. ACETAMINOPHEN [Concomitant]
     Active Substance: ACETAMINOPHEN
  4. ALBUTEROL SULFATE [Concomitant]
     Active Substance: ALBUTEROL SULFATE
  5. BACLOFEN [Concomitant]
     Active Substance: BACLOFEN
  6. CALCIUM [Concomitant]
     Active Substance: CALCIUM
  7. DIASTAT ACUDIAL [Concomitant]
     Active Substance: DIAZEPAM
  8. FAMOTIDINE [Concomitant]
     Active Substance: FAMOTIDINE
     Indication: Product used for unknown indication
  9. IBUPROFEN [Concomitant]
     Active Substance: IBUPROFEN
     Indication: Product used for unknown indication
  10. KEPPRA [Concomitant]
     Active Substance: LEVETIRACETAM
     Indication: Product used for unknown indication
  11. LAMICTAL [Concomitant]
     Active Substance: LAMOTRIGINE
     Indication: Product used for unknown indication
  12. MIRALAX [Concomitant]
     Active Substance: POLYETHYLENE GLYCOL 3350
  13. VITAMINS [Concomitant]
     Active Substance: VITAMINS
  14. PHENOBARB SODIUM [Concomitant]
  15. PHOSPHA 250 NEUTRAL [Concomitant]
     Active Substance: POTASSIUM PHOSPHATE, MONOBASIC\SODIUM PHOSPHATE, DIBASIC, ANHYDROUS\SODIUM PHOSPHATE, MONOBASIC, MON
  16. PULMICORT TURBUHALER [Concomitant]
     Active Substance: BUDESONIDE
  17. REPLETE [Concomitant]
  18. ROBINUL [Concomitant]
     Active Substance: GLYCOPYRROLATE
  19. SENNA LEAF [Concomitant]
     Active Substance: SENNA LEAF
  20. SINGULAIR [Concomitant]
     Active Substance: MONTELUKAST SODIUM
     Indication: Product used for unknown indication
  21. VITAMIN D3 [Concomitant]
     Active Substance: CHOLECALCIFEROL
  22. ZYRTEC [Concomitant]
     Active Substance: CETIRIZINE HYDROCHLORIDE

REACTIONS (2)
  - Hospitalisation [Unknown]
  - Product dose omission issue [Unknown]
